FAERS Safety Report 4507469-2 (Version None)
Quarter: 2004Q4

REPORT INFORMATION
  Report Type: 
  Country: None (occurrence: None)
  Receive Date: 20041118
  Receipt Date: 20041104
  Transmission Date: 20050328
  Serious: Yes (Hospitalization)
  Sender: FDA-Public Use
  Company Number: 2004-BP-11264RO

PATIENT
  Age: 56 Year
  Sex: Male
  Weight: 71 kg

DRUGS (6)
  1. LEUCOVORIN CALCIUM [Suspect]
     Indication: COLON CANCER
     Dosage: 200 MG/M2 EVERY TWO WEEKS (NR, 1 IN 2 WK)
     Dates: start: 20040722
  2. IRINOTECAN (IRINOTECAN) [Suspect]
     Indication: COLON CANCER
     Dosage: 350 MG EVERY TWO WEEKS(1 IN 2  WK)
     Dates: start: 20040722
  3. FLUOROURACIL [Suspect]
     Indication: COLON CANCER
     Dosage: 1925 MG EVERY TWO WEEKS (1 IN 2 WK)
     Dates: start: 20040722
  4. OXYCODONE (OXYCODONE) [Concomitant]
  5. ACETAMINOPHEN [Concomitant]
  6. CELECOXIB (CELECOXIB) [Concomitant]

REACTIONS (4)
  - CLOSTRIDIAL INFECTION [None]
  - CULTURE STOOL POSITIVE [None]
  - DIARRHOEA [None]
  - VOMITING [None]
